FAERS Safety Report 16064365 (Version 2)
Quarter: 2019Q1

REPORT INFORMATION
  Report Type: Spontaneous
  Country: US (occurrence: US)
  Receive Date: 20190312
  Receipt Date: 20190322
  Transmission Date: 20190418
  Serious: No
  Sender: FDA-Public Use
  Company Number: US-BEH-2019100261

PATIENT
  Age: 52 Year
  Sex: Male

DRUGS (6)
  1. PRIVIGEN [Suspect]
     Active Substance: HUMAN IMMUNOGLOBULIN G
     Indication: HYPOGAMMAGLOBULINAEMIA
     Dosage: 25 G, QMT ( EVERY 28 DAYS)
     Route: 042
     Dates: start: 20180719
  2. TESTOSTERONE. [Concomitant]
     Active Substance: TESTOSTERONE
  3. ANDROGEL [Concomitant]
     Active Substance: TESTOSTERONE
     Dosage: 50 MG/ 5 G (1%)UNK
     Route: 065
  4. OCRELIZUMAB. [Concomitant]
     Active Substance: OCRELIZUMAB
     Dosage: 300 MG/10ML, UNK
     Route: 065
  5. ESCITALOPRAM [Concomitant]
     Active Substance: ESCITALOPRAM OXALATE
     Dosage: 20 MG, UNK
     Route: 065
  6. VITAMIN D                          /00107901/ [Concomitant]
     Active Substance: ERGOCALCIFEROL
     Dosage: 2000 IU, UNK
     Route: 065

REACTIONS (2)
  - Diarrhoea [Recovered/Resolved]
  - Headache [Recovered/Resolved]
